FAERS Safety Report 6482948-X (Version None)
Quarter: 2009Q4

REPORT INFORMATION
  Report Type: 
  Country: None (occurrence: None)
  Receive Date: 20091209
  Receipt Date: 20091208
  Transmission Date: 20100525
  Serious: Yes (Hospitalization)
  Sender: FDA-Public Use
  Company Number: US-ROXANE LABORATORIES, INC.-2009-RO-01237RO

PATIENT
  Sex: Female

DRUGS (3)
  1. PREDNISONE [Suspect]
     Indication: RENAL TRANSPLANT
     Route: 048
     Dates: start: 20090820
  2. BELATACEPT [Suspect]
     Indication: RENAL TRANSPLANT
     Route: 042
     Dates: start: 20071205
  3. IMURAN [Concomitant]
     Dates: start: 20080804

REACTIONS (1)
  - URINARY TRACT INFECTION [None]
